FAERS Safety Report 25833867 (Version 2)
Quarter: 2025Q4

REPORT INFORMATION
  Report Type: Spontaneous
  Country: US (occurrence: US)
  Receive Date: 20250923
  Receipt Date: 20251017
  Transmission Date: 20260117
  Serious: No
  Sender: CSL BEHRING
  Company Number: US-BEH-2025218909

PATIENT
  Age: 24 Year

DRUGS (4)
  1. HIZENTRA [Suspect]
     Active Substance: HUMAN IMMUNOGLOBULIN G
     Dosage: 12 G GIVEN WEEKLY TO BI WEEKLY IF CHOSEN
     Route: 065
     Dates: start: 20250910
  2. HIZENTRA [Suspect]
     Active Substance: HUMAN IMMUNOGLOBULIN G
     Dosage: 12 G GIVEN WEEKLY TO BI WEEKLY IF CHOSEN
     Route: 065
  3. HIZENTRA [Suspect]
     Active Substance: HUMAN IMMUNOGLOBULIN G
     Dosage: 10 G
     Route: 065
     Dates: start: 20250910
  4. HIZENTRA [Suspect]
     Active Substance: HUMAN IMMUNOGLOBULIN G
     Dosage: 2 G
     Route: 065
     Dates: start: 20250910

REACTIONS (3)
  - Hypersensitivity [Recovered/Resolved]
  - Infusion site reaction [Recovered/Resolved]
  - Adverse event [Recovered/Resolved]

NARRATIVE: CASE EVENT DATE: 20250901
